FAERS Safety Report 25544268 (Version 2)
Quarter: 2025Q3

REPORT INFORMATION
  Report Type: Spontaneous
  Country: US (occurrence: US)
  Receive Date: 20250711
  Receipt Date: 20250724
  Transmission Date: 20251020
  Serious: Yes (Other)
  Sender: Kenvue
  Company Number: US-KENVUE-20250701495

PATIENT
  Age: 0 Year
  Sex: Male
  Weight: 3.43 kg

DRUGS (13)
  1. TYLENOL [Suspect]
     Active Substance: ACETAMINOPHEN
     Indication: Migraine
     Route: 064
  2. PROPRANOLOL [Suspect]
     Active Substance: PROPRANOLOL HYDROCHLORIDE
     Indication: Migraine prophylaxis
     Route: 064
     Dates: start: 20210101
  3. NURTEC ODT [Suspect]
     Active Substance: RIMEGEPANT SULFATE
     Indication: Migraine
     Route: 064
     Dates: start: 2022, end: 20240824
  4. EXCEDRIN TENSION HEADACHE [Suspect]
     Active Substance: ACETAMINOPHEN\CAFFEINE
     Indication: Migraine
     Route: 064
     Dates: start: 2014
  5. FIORICET [Suspect]
     Active Substance: ACETAMINOPHEN\BUTALBITAL\CAFFEINE
     Indication: Migraine
     Route: 064
     Dates: start: 20250517, end: 20250517
  6. FIORICET [Suspect]
     Active Substance: ACETAMINOPHEN\BUTALBITAL\CAFFEINE
     Route: 064
     Dates: start: 20250520, end: 20250520
  7. WELLBUTRIN [Concomitant]
     Active Substance: BUPROPION HYDROCHLORIDE
     Indication: Anxiety
     Route: 064
  8. WELLBUTRIN [Concomitant]
     Active Substance: BUPROPION HYDROCHLORIDE
     Indication: Depression
  9. ZOLOFT [Concomitant]
     Active Substance: SERTRALINE HYDROCHLORIDE
     Indication: Anxiety
     Route: 064
  10. ZOLOFT [Concomitant]
     Active Substance: SERTRALINE HYDROCHLORIDE
     Indication: Depression
  11. ZOFRAN [Concomitant]
     Active Substance: ONDANSETRON HYDROCHLORIDE
     Indication: Vomiting
     Route: 064
     Dates: start: 2024
  12. SCOPOLAMINE [Concomitant]
     Active Substance: SCOPOLAMINE
     Indication: Vomiting
     Route: 064
     Dates: start: 2024
  13. DICLEGIS [Concomitant]
     Active Substance: DOXYLAMINE SUCCINATE\PYRIDOXINE HYDROCHLORIDE
     Indication: Vomiting
     Route: 064
     Dates: start: 2024

REACTIONS (2)
  - Foetal heart rate deceleration abnormality [Recovered/Resolved]
  - Foetal exposure during pregnancy [Unknown]

NARRATIVE: CASE EVENT DATE: 20250522
